FAERS Safety Report 5468436-8 (Version None)
Quarter: 2007Q3

REPORT INFORMATION
  Report Type: 
  Country: None (occurrence: None)
  Receive Date: 20070926
  Receipt Date: 20070920
  Transmission Date: 20080115
  Serious: Yes (Hospitalization)
  Sender: FDA-Public Use
  Company Number: US-BRISTOL-MYERS SQUIBB COMPANY-13915095

PATIENT
  Age: 65 Year
  Sex: Male
  Weight: 55 kg

DRUGS (14)
  1. CETUXIMAB [Suspect]
     Indication: NON-SMALL CELL LUNG CANCER
     Dates: start: 20070314, end: 20070314
  2. TAXOTERE [Suspect]
     Indication: NON-SMALL CELL LUNG CANCER
     Route: 042
     Dates: start: 20070530, end: 20070530
  3. GEMCITABINE HCL [Suspect]
     Indication: NON-SMALL CELL LUNG CANCER
     Route: 042
     Dates: start: 20070530, end: 20070530
  4. LASIX [Concomitant]
  5. POTASSIUM CHLORIDE [Concomitant]
     Indication: BLOOD POTASSIUM DECREASED
  6. ATENOLOL [Concomitant]
  7. METOLAZONE [Concomitant]
  8. PHENERGAN HCL [Concomitant]
     Indication: NAUSEA
  9. LORTAB [Concomitant]
  10. DEXAMETHASONE 0.5MG TAB [Concomitant]
     Dates: end: 20070623
  11. LEVOTHYROXINE SODIUM [Concomitant]
  12. FLUCONAZOLE [Concomitant]
     Dates: end: 20070626
  13. FERROUS SULFATE TAB [Concomitant]
     Dates: end: 20070626
  14. METRONIDAZOLE [Concomitant]
     Dates: end: 20070626

REACTIONS (2)
  - ASTHENIA [None]
  - FALL [None]
